FAERS Safety Report 12511846 (Version 3)
Quarter: 2020Q4

REPORT INFORMATION
  Report Type: Spontaneous
  Country: US (occurrence: US)
  Receive Date: 20160630
  Receipt Date: 20201021
  Transmission Date: 20210113
  Serious: Yes (Hospitalization)
  Sender: FDA-Public Use
  Company Number: US-JNJFOC-20160603733

PATIENT
  Age: 83 Year
  Sex: Female

DRUGS (1)
  1. XARELTO [Suspect]
     Active Substance: RIVAROXABAN
     Indication: DEEP VEIN THROMBOSIS
     Dosage: 15 MG TWICE A DAY WITH MEALS FOR 21 DAYS FOLLOWED BY 20 MG 01 TABLET DAILY WITH SUPPER
     Route: 048
     Dates: start: 20140805, end: 20150804

REACTIONS (2)
  - Gastrointestinal haemorrhage [Unknown]
  - Anaemia [Unknown]

NARRATIVE: CASE EVENT DATE: 20150804
